FAERS Safety Report 14953340 (Version 1)
Quarter: 2018Q2

REPORT INFORMATION
  Report Type: Spontaneous
  Country: PT (occurrence: PT)
  Receive Date: 20180530
  Receipt Date: 20180530
  Transmission Date: 20180711
  Serious: Yes (Death)
  Sender: FDA-Public Use
  Company Number: PT-JNJFOC-20180534517

PATIENT
  Age: 80 Year
  Sex: Female

DRUGS (1)
  1. IMBRUVICA [Suspect]
     Active Substance: IBRUTINIB
     Indication: PROLYMPHOCYTIC LEUKAEMIA
     Dosage: 4 WEEKS BEFORE THE ADVERSE EVENT
     Route: 048

REACTIONS (1)
  - Hepatotoxicity [Fatal]
